FAERS Safety Report 12342282 (Version 2)
Quarter: 2017Q3

REPORT INFORMATION
  Report Type: Report from Study
  Country: FR (occurrence: FR)
  Receive Date: 20160506
  Receipt Date: 20170719
  Transmission Date: 20171127
  Serious: Yes (Hospitalization, Other)
  Sender: FDA-Public Use
  Company Number: FR-BRISTOL-MYERS SQUIBB COMPANY-BMS-2016-032973

PATIENT
  Age: 46 Year
  Sex: Male
  Weight: 70 kg

DRUGS (1)
  1. ENTECAVIR. [Suspect]
     Active Substance: ENTECAVIR
     Indication: HEPATITIS B
     Dosage: 0.5 MG, QD
     Route: 065
     Dates: start: 20080604

REACTIONS (6)
  - Mallory-Weiss syndrome [Unknown]
  - Device material issue [Unknown]
  - Hepatocellular carcinoma [Unknown]
  - Device related infection [Unknown]
  - Hepatic cirrhosis [Unknown]
  - Device loosening [Recovered/Resolved]

NARRATIVE: CASE EVENT DATE: 20131126
